FAERS Safety Report 6610033-2 (Version None)
Quarter: 2010Q1

REPORT INFORMATION
  Report Type: 
  Country: None (occurrence: None)
  Receive Date: 20100302
  Receipt Date: 20100224
  Transmission Date: 20100710
  Serious: Yes (Hospitalization)
  Sender: FDA-Public Use
  Company Number: BE-ROCHE-685711

PATIENT
  Age: 52 Year
  Sex: Male
  Weight: 96 kg

DRUGS (4)
  1. BEVACIZUMAB [Suspect]
     Route: 042
     Dates: start: 20100112
  2. FLUOROURACIL/FOLINIC ACID/IRINOTECAN [Suspect]
     Dosage: DRUG REPORTED: FOLFIRI.
     Route: 042
     Dates: start: 20100112
  3. AMLOR [Concomitant]
     Indication: HYPERTENSION
     Route: 048
     Dates: start: 20091230
  4. INDERAL [Concomitant]
     Indication: HYPERTENSION
     Route: 048
     Dates: start: 20091230

REACTIONS (1)
  - ENTEROCOLITIS [None]
